FAERS Safety Report 15267565 (Version 1)
Quarter: 2018Q3

REPORT INFORMATION
  Report Type: Spontaneous
  Country: US (occurrence: US)
  Receive Date: 20180724
  Receipt Date: 20180724
  Transmission Date: 20181010
  Serious: Yes (Hospitalization, Disabling)
  Sender: FDA-Public Use
  Company Number: None

PATIENT
  Age: 74 Year
  Sex: Male
  Weight: 78.3 kg

DRUGS (6)
  1. PHENYTOIN. [Concomitant]
     Active Substance: PHENYTOIN
  2. KEPPRA [Concomitant]
     Active Substance: LEVETIRACETAM
  3. CHEMO [Concomitant]
     Active Substance: UNSPECIFIED INGREDIENT
  4. DEXAMETHASON [Concomitant]
     Active Substance: DEXAMETHASONE
  5. CYBER KNIFE [Concomitant]
  6. VALSARTAN. [Suspect]
     Active Substance: VALSARTAN
     Indication: HYPERTENSION
     Route: 048

REACTIONS (5)
  - Lung neoplasm malignant [None]
  - Bone cancer [None]
  - Brain neoplasm [None]
  - Seizure [None]
  - Hepatic cancer [None]

NARRATIVE: CASE EVENT DATE: 20180616
